FAERS Safety Report 4962913-1 (Version None)
Quarter: 2006Q1

REPORT INFORMATION
  Report Type: 
  Country: None (occurrence: None)
  Receive Date: 20060331
  Receipt Date: 20060313
  Transmission Date: 20060701
  Serious: Yes (Other)
  Sender: FDA-Public Use
  Company Number: US200603003350

PATIENT
  Sex: Female

DRUGS (1)
  1. HUMALOG MIX 75/25 [Suspect]
     Dosage: SEE IMAGE
     Dates: start: 20020101

REACTIONS (6)
  - BLOOD GLUCOSE INCREASED [None]
  - CATARACT DIABETIC [None]
  - EYE HAEMORRHAGE [None]
  - EYE OEDEMA [None]
  - LOCALISED OEDEMA [None]
  - PHARMACEUTICAL PRODUCT COMPLAINT [None]
